FAERS Safety Report 15880696 (Version 1)
Quarter: 2019Q1

REPORT INFORMATION
  Report Type: Spontaneous
  Country: US (occurrence: US)
  Receive Date: 20190104
  Receipt Date: 20190104
  Transmission Date: 20190417
  Serious: Yes (Other)
  Sender: FDA-Public Use
  Company Number: None

PATIENT
  Age: 66 Year
  Sex: Male
  Weight: 84 kg

DRUGS (3)
  1. DURVALUMAB. [Suspect]
     Active Substance: DURVALUMAB
  2. DURVALUMAB. [Suspect]
     Active Substance: DURVALUMAB
  3. DURVALUMAB. [Suspect]
     Active Substance: DURVALUMAB
     Indication: NON-SMALL CELL LUNG CANCER
     Route: 042
     Dates: start: 20180821

REACTIONS (7)
  - Cough [None]
  - Dyspnoea [None]
  - Flushing [None]
  - Wheezing [None]
  - Sneezing [None]
  - Sinus congestion [None]
  - Tachycardia [None]

NARRATIVE: CASE EVENT DATE: 20190103
